FAERS Safety Report 6236241-0 (Version None)
Quarter: 2009Q2

REPORT INFORMATION
  Report Type: 
  Country: None (occurrence: None)
  Receive Date: 20090616
  Receipt Date: 20090604
  Transmission Date: 20091009
  Serious: Yes (Other)
  Sender: FDA-Public Use
  Company Number: 2009AL001788

PATIENT
  Age: 75 Year
  Sex: Male

DRUGS (8)
  1. DIGOXIN [Suspect]
     Dosage: 0.125MG, PO
     Route: 048
     Dates: start: 20050721, end: 20080721
  2. COREG [Concomitant]
  3. PROPOXYPHENE HCL CAP [Concomitant]
  4. WARFARIN SODIUM [Concomitant]
  5. FUROSEMIDE INTENSOL [Concomitant]
  6. TORSEMIDE [Concomitant]
  7. JANTOVEN [Concomitant]
  8. METOPROLOL SUCCINATE [Concomitant]

REACTIONS (2)
  - ECONOMIC PROBLEM [None]
  - INJURY [None]
